FAERS Safety Report 10268832 (Version 2)
Quarter: 2015Q1

REPORT INFORMATION
  Report Type: Spontaneous
  Country: US (occurrence: US)
  Receive Date: 20140630
  Receipt Date: 20150331
  Transmission Date: 20150720
  Serious: Yes (Hospitalization, Disabling, Other)
  Sender: FDA-Public Use
  Company Number: US-BAYER-2014-093345

PATIENT
  Age: 44 Year
  Sex: Female

DRUGS (3)
  1. CIPRO [Suspect]
     Active Substance: CIPROFLOXACIN HYDROCHLORIDE
     Indication: URINARY TRACT INFECTION
     Dosage: 400 MG 3 TIMES IN AN HOUR
     Dates: start: 20070808
  2. IMITREX [Concomitant]
     Active Substance: SUMATRIPTAN\SUMATRIPTAN SUCCINATE
  3. PROPOFOL. [Suspect]
     Active Substance: PROPOFOL
     Indication: ENDOTRACHEAL INTUBATION
     Dosage: 4 1000 MG DOSES TOTALLY
     Dates: start: 20070810

REACTIONS (23)
  - Injury [None]
  - Product use issue [None]
  - Speech disorder [None]
  - Sepsis [None]
  - Migraine [None]
  - Dyspnoea [None]
  - Cardiomegaly [None]
  - Heart rate decreased [None]
  - Impaired work ability [None]
  - Syncope [None]
  - Unresponsive to stimuli [None]
  - Gait disturbance [None]
  - Overdose [None]
  - Loss of consciousness [None]
  - Atelectasis [None]
  - Oxygen saturation decreased [None]
  - Obstructive airways disorder [None]
  - Cerebrovascular accident [None]
  - Fear of death [None]
  - Coma [None]
  - Memory impairment [None]
  - Pulse absent [None]
  - Quality of life decreased [None]

NARRATIVE: CASE EVENT DATE: 200708
